FAERS Safety Report 6624723-9 (Version None)
Quarter: 2010Q1

REPORT INFORMATION
  Report Type: 
  Country: None (occurrence: None)
  Receive Date: 20100310
  Receipt Date: 20100224
  Transmission Date: 20100710
  Serious: Yes (Hospitalization)
  Sender: FDA-Public Use
  Company Number: JP-ROCHE-688587

PATIENT
  Age: 66 Year
  Sex: Male
  Weight: 50.5 kg

DRUGS (2)
  1. AVASTIN [Suspect]
     Indication: LUNG ADENOCARCINOMA
     Route: 041
     Dates: start: 20100104, end: 20100215
  2. TAXOTERE [Concomitant]
     Dosage: ROUTE: INTRAVENOUS (NOT OTHERWISE SPECIFIED) DRUG: TAXOTERE(DOCETAXEL HYDRATE)
     Route: 042

REACTIONS (1)
  - IDIOPATHIC PULMONARY FIBROSIS [None]
